FAERS Safety Report 11639390 (Version 1)
Quarter: 2015Q4

REPORT INFORMATION
  Report Type: Spontaneous
  Country: US (occurrence: US)
  Receive Date: 20151019
  Receipt Date: 20151019
  Transmission Date: 20160304
  Serious: Yes (Hospitalization)
  Sender: FDA-Public Use
  Company Number: US-LUPIN PHARMACEUTICALS INC.-E2B_00003036

PATIENT
  Age: 70 Year
  Sex: Female

DRUGS (2)
  1. LISINOPRIL TABLETS USP 20MG [Suspect]
     Active Substance: LISINOPRIL
     Indication: HYPERTENSION
  2. COUMADIN [Concomitant]
     Active Substance: WARFARIN SODIUM
     Indication: THROMBOSIS

REACTIONS (2)
  - Hyponatraemia [Not Recovered/Not Resolved]
  - Confusional state [Recovering/Resolving]
